FAERS Safety Report 9106197 (Version 2)
Quarter: 2013Q1

REPORT INFORMATION
  Report Type: Spontaneous
  Country: US (occurrence: US)
  Receive Date: 20130221
  Receipt Date: 20130308
  Transmission Date: 20140127
  Serious: Yes (Other)
  Sender: FDA-Public Use
  Company Number: CHPA2013US003076

PATIENT
  Age: 93 Year
  Sex: Female

DRUGS (3)
  1. VOLTAREN GEL [Suspect]
     Indication: ARTHRALGIA
     Dosage: APPLIED IT UP TO THE 4 ON THE PLASTIC
     Route: 061
     Dates: start: 20130208, end: 20130212
  2. COUMADIN SODIUM [Concomitant]
  3. WARFARIN [Concomitant]

REACTIONS (2)
  - Application site bruise [Recovered/Resolved]
  - Underdose [Unknown]
